FAERS Safety Report 6761475-6 (Version None)
Quarter: 2010Q2

REPORT INFORMATION
  Report Type: 
  Country: None (occurrence: None)
  Receive Date: 20100607
  Receipt Date: 20100422
  Transmission Date: 20101027
  Serious: Yes (Hospitalization)
  Sender: FDA-Public Use
  Company Number: 1-17293419

PATIENT
  Age: 68 Year
  Sex: Male
  Weight: 81.6475 kg

DRUGS (3)
  1. QUININE (MANUFACTURER UNKNOWN) [Suspect]
     Indication: MUSCLE SPASMS
     Dosage: ORAL
     Route: 048
     Dates: start: 20040524, end: 20060101
  2. NEXIUM [Concomitant]
  3. PROSCAR [Concomitant]

REACTIONS (4)
  - COAGULOPATHY [None]
  - HAEMORRHAGE [None]
  - HYPERSENSITIVITY [None]
  - THROMBOCYTOPENIA [None]
